FAERS Safety Report 22134695 (Version 1)
Quarter: 2023Q1

REPORT INFORMATION
  Report Type: Spontaneous
  Country: US (occurrence: None)
  Receive Date: 20230322
  Receipt Date: 20230322
  Transmission Date: 20230417
  Serious: Yes (Death)
  Sender: FDA-Public Use
  Company Number: None

PATIENT
  Age: 66 Year
  Sex: Female
  Weight: 110.7 kg

DRUGS (19)
  1. SUNITINIB MALEATE [Suspect]
     Active Substance: SUNITINIB MALEATE
     Indication: Renal cancer
     Dosage: FREQUENCY : DAILY;?OTHER ROUTE : 28DON14DOFFPO;?
     Route: 050
  2. ACETAMINOPHEN EXTRA STRENGTH [Concomitant]
  3. FAMOTIDINE [Concomitant]
  4. FEXOFENADINE [Concomitant]
  5. GABAPENTIN [Concomitant]
  6. VITAMIN D3 [Concomitant]
  7. JANUVIA [Concomitant]
  8. FERROUS SULFATE [Concomitant]
  9. LANTUS [Concomitant]
  10. LETROZOLE [Concomitant]
  11. LEXAPRO [Concomitant]
  12. MONTELUKAST [Concomitant]
  13. MULTIVITAMIN WOMEN [Concomitant]
  14. NYSTATIN [Concomitant]
  15. OXYCODONE [Concomitant]
  16. PANTOPRAZOLE [Concomitant]
  17. POLYETHYLENE GLYCOL [Concomitant]
  18. SUTENT [Concomitant]
  19. TOVIAZ [Concomitant]

REACTIONS (1)
  - Death [None]
